FAERS Safety Report 7327017-1 (Version None)
Quarter: 2011Q1

REPORT INFORMATION
  Report Type: 
  Country: None (occurrence: None)
  Receive Date: 20110222
  Receipt Date: 20110215
  Transmission Date: 20110831
  Serious: Yes (Other)
  Sender: FDA-Public Use
  Company Number: 2009SP023500

PATIENT
  Age: 36 Year
  Sex: Female
  Weight: 70.7611 kg

DRUGS (2)
  1. NUVARING [Suspect]
     Indication: CONTRACEPTION
     Dates: start: 20060101
  2. NUVARING [Suspect]
     Indication: MENSTRUAL CYCLE MANAGEMENT
     Dates: start: 20060101

REACTIONS (9)
  - THROMBOPHLEBITIS SUPERFICIAL [None]
  - HEADACHE [None]
  - MASS [None]
  - SINUS HEADACHE [None]
  - TREATMENT NONCOMPLIANCE [None]
  - UTERINE CERVICAL SQUAMOUS METAPLASIA [None]
  - GASTROENTERITIS VIRAL [None]
  - NECK MASS [None]
  - TOOTH EXTRACTION [None]
